FAERS Safety Report 25901268 (Version 4)
Quarter: 2025Q4

REPORT INFORMATION
  Report Type: Spontaneous
  Country: US (occurrence: US)
  Receive Date: 20251009
  Receipt Date: 20251204
  Transmission Date: 20260117
  Serious: Yes (Other)
  Sender: CSL BEHRING
  Company Number: US-BEH-2025220066

PATIENT
  Sex: Female

DRUGS (4)
  1. HIZENTRA [Suspect]
     Active Substance: HUMAN IMMUNOGLOBULIN G
     Indication: IgG deficiency
     Dosage: 2 G, QOW
     Route: 058
     Dates: start: 202505
  2. HIZENTRA [Suspect]
     Active Substance: HUMAN IMMUNOGLOBULIN G
     Indication: Hypergammaglobulinaemia
     Dosage: 10 G, QOW
     Route: 058
     Dates: start: 202505
  3. PROLIA [Suspect]
     Active Substance: DENOSUMAB
  4. HUMIRA [Concomitant]
     Active Substance: ADALIMUMAB

REACTIONS (17)
  - Pseudo Cushing^s syndrome [Unknown]
  - Inflammation [Unknown]
  - Hypervitaminosis D [Unknown]
  - Abdominal distension [Unknown]
  - Decreased appetite [Unknown]
  - Peripheral swelling [Unknown]
  - Joint swelling [Unknown]
  - Infusion site pain [Unknown]
  - Infusion site pruritus [Unknown]
  - Infusion site swelling [Unknown]
  - Peripheral swelling [Unknown]
  - Decreased appetite [Unknown]
  - Peripheral swelling [Unknown]
  - Joint swelling [Unknown]
  - Infusion site pain [Unknown]
  - Infusion site pruritus [Unknown]
  - Infusion site swelling [Unknown]

NARRATIVE: CASE EVENT DATE: 20250101
